FAERS Safety Report 11081862 (Version 1)
Quarter: 2015Q2

REPORT INFORMATION
  Report Type: Spontaneous
  Country: US (occurrence: None)
  Receive Date: 20150430
  Receipt Date: 20150430
  Transmission Date: 20150821
  Serious: Yes (Hospitalization)
  Sender: FDA-Public Use
  Company Number: None

PATIENT
  Age: 72 Year
  Sex: Female

DRUGS (6)
  1. PRILOSEC [Concomitant]
     Active Substance: OMEPRAZOLE MAGNESIUM
  2. CALCIUM WITH D [Concomitant]
     Active Substance: CALCIUM\VITAMIN D
  3. IMBRUVICA [Suspect]
     Active Substance: IBRUTINIB
     Indication: CHRONIC LYMPHOCYTIC LEUKAEMIA
     Dosage: 140 MG, 3 CAPSULES ONCE DAILY, ORAL
     Route: 048
     Dates: start: 20140603
  4. METOPROLOL [Concomitant]
     Active Substance: METOPROLOL
  5. ZOFRAN [Concomitant]
     Active Substance: ONDANSETRON HYDROCHLORIDE
  6. LIPITOR [Concomitant]
     Active Substance: ATORVASTATIN CALCIUM

REACTIONS (4)
  - Bronchitis [None]
  - Heart rate increased [None]
  - Urinary tract infection [None]
  - Hyperhidrosis [None]

NARRATIVE: CASE EVENT DATE: 20150428
